FAERS Safety Report 8294003-7 (Version None)
Quarter: 2012Q2

REPORT INFORMATION
  Report Type: 
  Country: None (occurrence: None)
  Receive Date: 20120418
  Receipt Date: 20120416
  Transmission Date: 20120825
  Serious: Yes (Other)
  Sender: FDA-Public Use
  Company Number: US-PFIZER INC-2012094190

PATIENT
  Sex: Female
  Weight: 86.168 kg

DRUGS (2)
  1. CHANTIX [Suspect]
     Indication: SMOKING CESSATION THERAPY
     Dosage: 0.5 MG, 1X/DAY
     Route: 048
     Dates: start: 20111101, end: 20120201
  2. ZYRTEC [Concomitant]
     Indication: HYPERSENSITIVITY
     Dosage: UNK

REACTIONS (4)
  - SYSTEMIC LUPUS ERYTHEMATOSUS [None]
  - HIV TEST FALSE POSITIVE [None]
  - IMMUNE SYSTEM DISORDER [None]
  - STRESS [None]
